FAERS Safety Report 12744577 (Version 3)
Quarter: 2018Q2

REPORT INFORMATION
  Report Type: Spontaneous
  Country: US (occurrence: US)
  Receive Date: 20160914
  Receipt Date: 20180605
  Transmission Date: 20180711
  Serious: No
  Sender: FDA-Public Use
  Company Number: US-JAZZ-2016-US-009426

PATIENT
  Age: 56 Year
  Sex: Female

DRUGS (35)
  1. XYREM [Suspect]
     Active Substance: SODIUM OXYBATE
     Dosage: 4 G, BID
     Route: 048
     Dates: start: 200903
  2. CYTOMEL [Concomitant]
     Active Substance: LIOTHYRONINE SODIUM
  3. PREVACID [Concomitant]
     Active Substance: LANSOPRAZOLE
  4. XYREM [Suspect]
     Active Substance: SODIUM OXYBATE
     Indication: FIBROMYALGIA
     Dosage: 2.5 G, BID
     Route: 048
     Dates: start: 200605, end: 200608
  5. IBUPROFEN. [Concomitant]
     Active Substance: IBUPROFEN
  6. KLONOPIN [Concomitant]
     Active Substance: CLONAZEPAM
  7. LYRICA [Concomitant]
     Active Substance: PREGABALIN
  8. MIRALAX [Concomitant]
     Active Substance: POLYETHYLENE GLYCOL 3350
  9. NIZORAL [Concomitant]
     Active Substance: KETOCONAZOLE
  10. REMERON [Concomitant]
     Active Substance: MIRTAZAPINE
  11. TIMOLOL. [Concomitant]
     Active Substance: TIMOLOL
  12. ASCORBIC ACID. [Concomitant]
     Active Substance: ASCORBIC ACID
  13. XYREM [Suspect]
     Active Substance: SODIUM OXYBATE
     Dosage: 2 G, BID
     Route: 048
  14. SULFACETAMIDE SODIUM AND SULFUR [Concomitant]
     Active Substance: SULFACETAMIDE SODIUM\SULFUR
  15. ONDANSETRON HYDROCHLORIDE. [Concomitant]
     Active Substance: ONDANSETRON HYDROCHLORIDE
  16. HYDROCODONE BITARTRATE W/PARACETAMOL [Concomitant]
     Active Substance: ACETAMINOPHEN\HYDROCODONE BITARTRATE
  17. PROCHLORPERAZINE EDISYLATE. [Concomitant]
     Active Substance: PROCHLORPERAZINE EDISYLATE
  18. VITAMIN B12 + FOLIC ACID [Concomitant]
  19. LORATADINE. [Concomitant]
     Active Substance: LORATADINE
  20. ENTOCORT [Concomitant]
     Active Substance: BUDESONIDE
  21. IRON [Concomitant]
     Active Substance: IRON
  22. PROGESTERONE. [Concomitant]
     Active Substance: PROGESTERONE
  23. FIORICET [Concomitant]
     Active Substance: ACETAMINOPHEN\BUTALBITAL\CAFFEINE
  24. RELPAX [Concomitant]
     Active Substance: ELETRIPTAN HYDROBROMIDE
  25. METFORMIN HYDROCHLORIDE. [Concomitant]
     Active Substance: METFORMIN HYDROCHLORIDE
  26. OXYCONTIN [Concomitant]
     Active Substance: OXYCODONE HYDROCHLORIDE
  27. SYNTHROID [Concomitant]
     Active Substance: LEVOTHYROXINE SODIUM
  28. TRILEPTAL [Concomitant]
     Active Substance: OXCARBAZEPINE
  29. XYREM [Suspect]
     Active Substance: SODIUM OXYBATE
     Dosage: DOSE ADJUSTMENTS
     Route: 048
  30. BUSPIRONE HCL [Concomitant]
     Active Substance: BUSPIRONE HYDROCHLORIDE
  31. ZANAFLEX [Concomitant]
     Active Substance: TIZANIDINE HYDROCHLORIDE
  32. BLOCADREN [Concomitant]
     Active Substance: TIMOLOL MALEATE
  33. CHOLESTYRAMINE. [Concomitant]
     Active Substance: CHOLESTYRAMINE
  34. MIRAPEX [Concomitant]
     Active Substance: PRAMIPEXOLE DIHYDROCHLORIDE
  35. METOCLOPRAMIDE HYDROCHLORIDE. [Concomitant]
     Active Substance: METOCLOPRAMIDE HYDROCHLORIDE

REACTIONS (5)
  - Insomnia [Not Recovered/Not Resolved]
  - Anaemia [Unknown]
  - Weight decreased [Unknown]
  - Migraine [Not Recovered/Not Resolved]
  - Pre-existing condition improved [Unknown]

NARRATIVE: CASE EVENT DATE: 201504
